FAERS Safety Report 9846551 (Version 2)
Quarter: 2014Q1

REPORT INFORMATION
  Report Type: Spontaneous
  Country: US (occurrence: US)
  Receive Date: 20140127
  Receipt Date: 20140324
  Transmission Date: 20141002
  Serious: Yes (Other)
  Sender: FDA-Public Use
  Company Number: US-GLAXOSMITHKLINE-A1056912A

PATIENT
  Age: 36 Year
  Sex: Female

DRUGS (12)
  1. ADVAIR HFA [Suspect]
     Indication: BRONCHITIS CHRONIC
     Dosage: 2PUFF TWICE PER DAY
     Route: 055
     Dates: start: 200901
  2. VENTOLIN HFA [Suspect]
     Indication: BRONCHOSPASM
     Dosage: 2PUFF SIX TIMES PER DAY
     Route: 055
     Dates: start: 200801
  3. TRILEPTAL [Concomitant]
  4. PRILOSEC [Concomitant]
  5. PROMETHAZINE [Concomitant]
  6. CLONIDINE [Concomitant]
  7. CELEXA [Concomitant]
  8. CALCIUM SUPPLEMENT [Concomitant]
  9. TYLENOL [Concomitant]
  10. GLUCOSAMINE CHONDROITIN [Concomitant]
  11. ZINC SUPPLEMENT [Concomitant]
  12. MAGNESIUM SUPPLEMENT [Concomitant]

REACTIONS (8)
  - Lung infection [Not Recovered/Not Resolved]
  - Breath sounds abnormal [Not Recovered/Not Resolved]
  - Malaise [Not Recovered/Not Resolved]
  - Rhonchi [Not Recovered/Not Resolved]
  - Wheezing [Not Recovered/Not Resolved]
  - Dyspnoea [Not Recovered/Not Resolved]
  - Prescribed overdose [Unknown]
  - Cough [Not Recovered/Not Resolved]
